FAERS Safety Report 6829150-7 (Version None)
Quarter: 2010Q3

REPORT INFORMATION
  Report Type: 
  Country: None (occurrence: None)
  Receive Date: 20100709
  Receipt Date: 20070302
  Transmission Date: 20110219
  Serious: No
  Sender: FDA-Public Use
  Company Number: US-PFIZER INC-2007018230

PATIENT
  Sex: Female
  Weight: 88.45 kg

DRUGS (4)
  1. CHANTIX [Suspect]
     Indication: SMOKING CESSATION THERAPY
     Dates: start: 20070228
  2. ERYTHROMYCIN [Suspect]
     Indication: BRONCHITIS
     Dates: start: 20070228, end: 20070301
  3. SYNTHROID [Concomitant]
  4. IRON [Concomitant]

REACTIONS (1)
  - NAUSEA [None]
